FAERS Safety Report 9101985 (Version 1)
Quarter: 2013Q1

REPORT INFORMATION
  Report Type: Spontaneous
  Country: CZ (occurrence: CZ)
  Receive Date: 20130218
  Receipt Date: 20130218
  Transmission Date: 20140127
  Serious: Yes (Hospitalization)
  Sender: FDA-Public Use
  Company Number: CZ-TEVA-385139ISR

PATIENT
  Sex: Female

DRUGS (19)
  1. FURON /00032601/ [Suspect]
     Indication: MYOCARDIAL ISCHAEMIA
     Dosage: 20 MILLIGRAM DAILY; IN JANUARY 2013, IN THE MORNING
     Route: 048
  2. FURON /00032601/ [Suspect]
     Indication: HYPERTENSION
     Dosage: IN 2011 ADMINISTERED 80 MG/DAY
     Dates: start: 2009, end: 2011
  3. TRITTICO [Suspect]
     Indication: DEPRESSION
     Dosage: 50 MILLIGRAM DAILY;
     Dates: start: 2009
  4. TRITTICO [Suspect]
     Dosage: 100 MILLIGRAM DAILY;
     Dates: start: 2012
  5. SERTRALINE [Suspect]
     Indication: DEPRESSION
     Dosage: 25 MILLIGRAM DAILY; DOSE DECREASED TO 25 MG DAILY SINCE 4.1.2013
     Dates: start: 20130104
  6. AMPRILAN 5 [Concomitant]
     Indication: HYPERTENSION
  7. BURONIL 25MG [Concomitant]
     Indication: DEPRESSION
  8. PURINOL 100MG [Concomitant]
     Indication: HYPERURICAEMIA
     Dosage: 100 MILLIGRAM DAILY;
     Route: 048
  9. LEXAURIN 3MG [Concomitant]
     Indication: DEPRESSION
  10. ZOPITIN 7.5MG [Concomitant]
     Indication: DEPRESSION
  11. MADOPAR 62.5MG [Concomitant]
     Indication: EXTRAPYRAMIDAL DISORDER
  12. GLYCLADA 30MG [Concomitant]
     Indication: TYPE 2 DIABETES MELLITUS
     Dosage: 30 MILLIGRAM DAILY;
  13. BETALOC ZOK 25MG [Concomitant]
     Indication: MYOCARDIAL ISCHAEMIA
     Dosage: 25 MILLIGRAM DAILY;
  14. BETALOC ZOK 25MG [Concomitant]
     Indication: HYPERTENSION
  15. VEROSPIRON 25MG [Concomitant]
     Indication: HYPERTENSION
  16. NEUROL [Concomitant]
     Indication: DEPRESSION
  17. RIVOTRIL 0.5MG [Concomitant]
     Indication: DEPRESSION
  18. ESOMEPRAZOLE 20MG [Concomitant]
     Indication: PEPTIC ULCER
  19. ESOMEPRAZOLE 20MG [Concomitant]
     Indication: GASTROOESOPHAGEAL REFLUX DISEASE

REACTIONS (3)
  - Hyponatraemia [Recovered/Resolved]
  - General physical health deterioration [Recovered/Resolved]
  - Nausea [Recovered/Resolved]
